FAERS Safety Report 20898371 (Version 1)
Quarter: 2022Q2

REPORT INFORMATION
  Report Type: Spontaneous
  Country: IR (occurrence: IR)
  Receive Date: 20220531
  Receipt Date: 20220531
  Transmission Date: 20220720
  Serious: Yes (Other)
  Sender: FDA-Public Use
  Company Number: IR-SUN PHARMACEUTICAL INDUSTRIES LTD-2022RR-339067

PATIENT
  Age: 30 Month
  Sex: Male

DRUGS (11)
  1. LEVETIRACETAM [Suspect]
     Active Substance: LEVETIRACETAM
     Indication: Seizure
     Dosage: UNK
     Route: 065
  2. MEROPENEM [Suspect]
     Active Substance: MEROPENEM
     Indication: Sepsis
     Dosage: UNK
     Route: 065
  3. MEROPENEM [Suspect]
     Active Substance: MEROPENEM
     Indication: Candida infection
  4. FLUCONAZOLE [Suspect]
     Active Substance: FLUCONAZOLE
     Indication: Candida infection
     Dosage: 100 MILLIGRAM/KILOGRAM, DAILY
     Route: 065
  5. FLUCONAZOLE [Suspect]
     Active Substance: FLUCONAZOLE
     Indication: Sepsis
  6. VANCOMYCIN HYDROCHLORIDE [Suspect]
     Active Substance: VANCOMYCIN HYDROCHLORIDE
     Indication: Candida infection
     Dosage: UNK
     Route: 065
  7. VANCOMYCIN HYDROCHLORIDE [Suspect]
     Active Substance: VANCOMYCIN HYDROCHLORIDE
     Indication: Sepsis
  8. PHENOBARBITAL [Suspect]
     Active Substance: PHENOBARBITAL
     Indication: Seizure
     Dosage: UNK
     Route: 065
  9. PHENYTOIN [Suspect]
     Active Substance: PHENYTOIN
     Indication: Seizure
     Dosage: UNK
     Route: 065
  10. AMPHOTERICIN B [Concomitant]
     Active Substance: AMPHOTERICIN B
     Indication: Meningitis bacterial
     Dosage: 3 MILLIGRAM/KILOGRAM, DAILY
     Route: 042
  11. FLUCYTOSINE [Concomitant]
     Active Substance: FLUCYTOSINE
     Indication: Meningitis bacterial
     Dosage: 250 MILLIGRAM/KILOGRAM, DAILY
     Route: 048

REACTIONS (2)
  - Drug ineffective [Unknown]
  - Drug resistance [Unknown]
